FAERS Safety Report 5670924-6 (Version None)
Quarter: 2008Q2

REPORT INFORMATION
  Report Type: 
  Country: None (occurrence: None)
  Receive Date: 20080305
  Receipt Date: 20071210
  Transmission Date: 20081010
  Serious: Yes (Other)
  Sender: FDA-Public Use
  Company Number: BDI-010669

PATIENT
  Age: 68 Year
  Sex: Female
  Weight: 82 kg

DRUGS (1)
  1. ISOVUE-300 [Suspect]
     Indication: COMPUTERISED TOMOGRAM
     Dosage: 90 ML ONCE INTRAVENOUS
     Route: 042
     Dates: start: 20071210, end: 20071210

REACTIONS (1)
  - HYPERSENSITIVITY [None]
